FAERS Safety Report 25495548 (Version 2)
Quarter: 2025Q4

REPORT INFORMATION
  Report Type: Report from Study
  Country: CO (occurrence: CO)
  Receive Date: 20250630
  Receipt Date: 20251010
  Transmission Date: 20260118
  Serious: Yes (Hospitalization, Other)
  Sender: UCB
  Company Number: CO-UCBSA-2025039316

PATIENT
  Age: 0 Year
  Sex: Male
  Weight: 2.35 kg

DRUGS (5)
  1. CERTOLIZUMAB PEGOL [Suspect]
     Active Substance: CERTOLIZUMAB PEGOL
     Indication: Rheumatoid arthritis
     Dosage: 400 MILLIGRAM, EV 30 DAYS
     Route: 064
     Dates: start: 20241025, end: 20250505
  2. ACETAMINOPHEN [Concomitant]
     Active Substance: ACETAMINOPHEN
     Indication: Product used for unknown indication
     Dosage: UNK
     Route: 064
     Dates: start: 202506
  3. GESTAVIT [Concomitant]
     Indication: Product used for unknown indication
     Dosage: UNK
     Route: 064
     Dates: start: 20240801, end: 20250612
  4. PROGESTERONE [Concomitant]
     Active Substance: PROGESTERONE
     Indication: Product used for unknown indication
     Dosage: UNK
     Route: 064
     Dates: start: 20240921, end: 20250531
  5. ASPIRIN [Concomitant]
     Active Substance: ASPIRIN
     Indication: Product used for unknown indication
     Dosage: UNK
     Route: 064
     Dates: start: 20250419, end: 20250612

REACTIONS (6)
  - Foetal growth restriction [Unknown]
  - Low birth weight baby [Unknown]
  - Small for dates baby [Unknown]
  - Foetal distress syndrome [Unknown]
  - Maternal exposure before pregnancy [Unknown]
  - Maternal exposure during pregnancy [Unknown]

NARRATIVE: CASE EVENT DATE: 20241025
